FAERS Safety Report 6453991-1 (Version None)
Quarter: 2009Q4

REPORT INFORMATION
  Report Type: 
  Country: None (occurrence: None)
  Receive Date: 20091124
  Receipt Date: 20091117
  Transmission Date: 20100525
  Serious: Yes (Other)
  Sender: FDA-Public Use
  Company Number: A0365417A

PATIENT
  Age: 53 Year
  Sex: Female

DRUGS (4)
  1. AVANDIA [Suspect]
     Route: 048
     Dates: start: 20010201
  2. AVANDAMET [Suspect]
     Route: 048
     Dates: start: 20051101
  3. REGULAR INSULIN [Concomitant]
  4. NPH INSULIN [Concomitant]

REACTIONS (19)
  - ABDOMINAL PAIN [None]
  - ANORECTAL DISCOMFORT [None]
  - BODY TEMPERATURE INCREASED [None]
  - BRONCHITIS [None]
  - DIARRHOEA [None]
  - DIPLEGIA [None]
  - DISABILITY [None]
  - DYSPEPSIA [None]
  - FEELING ABNORMAL [None]
  - FLUID RETENTION [None]
  - GASTROINTESTINAL DISORDER [None]
  - HYPOAESTHESIA [None]
  - ILL-DEFINED DISORDER [None]
  - MEMORY IMPAIRMENT [None]
  - NASAL CONGESTION [None]
  - NAUSEA [None]
  - PARALYSIS [None]
  - PRODUCTIVE COUGH [None]
  - PYREXIA [None]
